FAERS Safety Report 6626253-7 (Version None)
Quarter: 2010Q1

REPORT INFORMATION
  Report Type: 
  Country: None (occurrence: None)
  Receive Date: 20100309
  Receipt Date: 20100309
  Transmission Date: 20100710
  Serious: Yes (Hospitalization)
  Sender: FDA-Public Use
  Company Number: None

PATIENT
  Age: 60 Year
  Sex: Male
  Weight: 90.7194 kg

DRUGS (2)
  1. ZOLPIDEM [Suspect]
     Indication: INSOMNIA
     Dosage: 10MG 1 PO
     Route: 048
     Dates: start: 20070510, end: 20100308
  2. ZOLPIDEM [Suspect]
     Indication: MIGRAINE
     Dosage: 10MG 1 PO
     Route: 048
     Dates: start: 20070510, end: 20100308

REACTIONS (3)
  - MEMORY IMPAIRMENT [None]
  - ROAD TRAFFIC ACCIDENT [None]
  - SOMNAMBULISM [None]
